FAERS Safety Report 23265578 (Version 2)
Quarter: 2023Q4

REPORT INFORMATION
  Report Type: Other
  Country: US (occurrence: None)
  Receive Date: 20231206
  Receipt Date: 20231209
  Transmission Date: 20240110
  Serious: Yes (Death, Hospitalization)
  Sender: FDA-Public Use
  Company Number: US-ROCHE-3443280

PATIENT
  Age: 46 Year
  Sex: Male

DRUGS (8)
  1. OCREVUS [Suspect]
     Active Substance: OCRELIZUMAB
     Indication: Relapsing multiple sclerosis
     Dosage: LAST OCREVUS DELIVERY DATE WAS ON 08/AUG/2023
     Route: 042
     Dates: start: 20190129
  2. OCREVUS [Suspect]
     Active Substance: OCRELIZUMAB
     Indication: Progressive multiple sclerosis
  3. HYDROCODONE [Concomitant]
     Active Substance: HYDROCODONE
  4. ARIPIPRAZOLE [Concomitant]
     Active Substance: ARIPIPRAZOLE
  5. BACLOFEN [Concomitant]
     Active Substance: BACLOFEN
  6. KLONOPIN [Concomitant]
     Active Substance: CLONAZEPAM
  7. LEXAPROFEN [Concomitant]
  8. GABAPENTIN [Concomitant]
     Active Substance: GABAPENTIN

REACTIONS (3)
  - Lung cancer metastatic [Fatal]
  - Emphysema [Fatal]
  - Pneumonia [Fatal]

NARRATIVE: CASE EVENT DATE: 20230701
